FAERS Safety Report 17484007 (Version 6)
Quarter: 2025Q3

REPORT INFORMATION
  Report Type: Spontaneous
  Country: EU (occurrence: EU)
  Receive Date: 20200302
  Receipt Date: 20250715
  Transmission Date: 20251021
  Serious: Yes (Hospitalization, Other)
  Sender: NOVARTIS
  Company Number: NVSC2020FR058299

PATIENT
  Age: 57 Year
  Sex: Male
  Weight: 183 kg

DRUGS (7)
  1. TAFINLAR [Suspect]
     Active Substance: DABRAFENIB MESYLATE
     Indication: Malignant melanoma
     Route: 065
     Dates: start: 20191019, end: 20200221
  2. MEKINIST [Suspect]
     Active Substance: TRAMETINIB DIMETHYL SULFOXIDE
     Indication: Malignant melanoma
     Route: 065
     Dates: start: 20191019, end: 20200221
  3. Bezafibrate Dci [Concomitant]
     Indication: Product used for unknown indication
     Route: 065
  4. CEFTRIAXONE [Concomitant]
     Active Substance: CEFTRIAXONE
     Indication: Product used for unknown indication
     Route: 042
  5. RIVOTRIL [Concomitant]
     Active Substance: CLONAZEPAM
     Indication: Product used for unknown indication
     Route: 065
  6. DULOXETINE [Concomitant]
     Active Substance: DULOXETINE
     Indication: Product used for unknown indication
     Route: 065
  7. LOVENOX [Concomitant]
     Active Substance: ENOXAPARIN SODIUM
     Indication: Product used for unknown indication
     Route: 065

REACTIONS (17)
  - Polyneuropathy [Recovering/Resolving]
  - Paraesthesia [Unknown]
  - Back pain [Unknown]
  - Neuritis [Unknown]
  - Meningitis [Unknown]
  - Dysmetria [Unknown]
  - Hypoaesthesia [Unknown]
  - Muscular weakness [Unknown]
  - Pain [Unknown]
  - Hyporeflexia [Unknown]
  - Sensory processing disorder [Unknown]
  - Diplopia [Unknown]
  - Neuralgia [Unknown]
  - Motor dysfunction [Unknown]
  - Dysaesthesia [Unknown]
  - Radiculopathy [Unknown]
  - Gait disturbance [Unknown]

NARRATIVE: CASE EVENT DATE: 20200101
